FAERS Safety Report 4531783-8 (Version None)
Quarter: 2004Q4

REPORT INFORMATION
  Report Type: 
  Country: None (occurrence: None)
  Receive Date: 20041220
  Receipt Date: 20041208
  Transmission Date: 20050328
  Serious: Yes (Hospitalization)
  Sender: FDA-Public Use
  Company Number: FR-JNJFOC-20041204481

PATIENT
  Age: 62 Year
  Sex: Male

DRUGS (6)
  1. ZALDIAR [Suspect]
     Indication: DRUG USE FOR UNKNOWN INDICATION
     Route: 049
     Dates: start: 20040903, end: 20040930
  2. STABLON [Concomitant]
     Route: 065
  3. OMEPRAZOLE [Concomitant]
  4. ASPIRIN [Concomitant]
  5. TAHOR [Concomitant]
  6. AREDIA [Concomitant]

REACTIONS (1)
  - CYTOLYTIC HEPATITIS [None]
